FAERS Safety Report 7416918-1 (Version None)
Quarter: 2011Q2

REPORT INFORMATION
  Report Type: 
  Country: None (occurrence: None)
  Receive Date: 20110407
  Receipt Date: 20110324
  Transmission Date: 20111010
  Serious: Yes (Other)
  Sender: FDA-Public Use
  Company Number: 2011P1005491

PATIENT
  Sex: Female

DRUGS (2)
  1. FENTANYL [Suspect]
     Indication: SURGERY
     Dosage: 4 MG;IV
     Route: 042
  2. DURAGESIC-100 [Suspect]
     Dosage: TDER
     Route: 062

REACTIONS (2)
  - DRUG TOLERANCE [None]
  - POST PROCEDURAL COMPLICATION [None]
